FAERS Safety Report 4886299-6 (Version None)
Quarter: 2006Q1

REPORT INFORMATION
  Report Type: 
  Country: None (occurrence: None)
  Receive Date: 20060120
  Receipt Date: 20050406
  Transmission Date: 20060701
  Serious: Yes (Hospitalization, Other)
  Sender: FDA-Public Use
  Company Number: US-MERCK-0504USA01021

PATIENT
  Age: 63 Year
  Sex: Male
  Weight: 81 kg

DRUGS (7)
  1. VIOXX [Suspect]
     Indication: ARTHRITIS
     Route: 048
     Dates: start: 20020101, end: 20040901
  2. ASPIRIN [Concomitant]
     Route: 065
  3. AMBIEN [Concomitant]
     Route: 065
  4. IBUPROFEN [Concomitant]
     Route: 065
  5. ATENOLOL [Concomitant]
     Route: 065
  6. ZOCOR [Concomitant]
     Route: 048
  7. LASIX [Concomitant]
     Route: 065

REACTIONS (13)
  - ABDOMINAL PAIN UPPER [None]
  - ARTERIOSCLEROSIS [None]
  - BACK PAIN [None]
  - BLOOD CHOLESTEROL INCREASED [None]
  - CORONARY ARTERY DISEASE [None]
  - ERYTHEMA [None]
  - EYE SWELLING [None]
  - GOITRE [None]
  - HYPERLIPIDAEMIA [None]
  - HYPERTENSION [None]
  - HYPERTHYROIDISM [None]
  - MYOCARDIAL INFARCTION [None]
  - RENAL FAILURE CHRONIC [None]
